FAERS Safety Report 11344290 (Version 1)
Quarter: 2015Q3

REPORT INFORMATION
  Report Type: Spontaneous
  Country: US (occurrence: None)
  Receive Date: 20150803
  Receipt Date: 20150803
  Transmission Date: 20151125
  Serious: Yes (Disabling)
  Sender: FDA-Public Use
  Company Number: None

PATIENT
  Age: 36 Year
  Sex: Female
  Weight: 68.04 kg

DRUGS (8)
  1. SUPER B-COMPLEX [Concomitant]
  2. ALS [Concomitant]
  3. ALPHA LIPOIC ACID [Concomitant]
     Active Substance: .ALPHA.-LIPOIC ACID
  4. SINUS SUPPORT [Concomitant]
  5. IBUPROFEN. [Concomitant]
     Active Substance: IBUPROFEN
  6. AVELOX [Suspect]
     Active Substance: MOXIFLOXACIN HYDROCHLORIDE
     Indication: SINUSITIS
     Route: 048
  7. ACETYL-CARNITINE HCI [Concomitant]
  8. MAGNESIUM [Concomitant]
     Active Substance: MAGNESIUM

REACTIONS (5)
  - Neuropathy peripheral [None]
  - Tinnitus [None]
  - Gait disturbance [None]
  - Dysstasia [None]
  - Fall [None]

NARRATIVE: CASE EVENT DATE: 20111228
